FAERS Safety Report 7673496-X (Version None)
Quarter: 2011Q3

REPORT INFORMATION
  Report Type: 
  Country: None (occurrence: None)
  Receive Date: 20110810
  Receipt Date: 20110803
  Transmission Date: 20111222
  Serious: Yes (Death)
  Sender: FDA-Public Use
  Company Number: PHHY2011BD70192

PATIENT
  Age: 62 Year
  Sex: Female

DRUGS (1)
  1. ZOLEDRONOC ACID [Suspect]
     Indication: OSTEOPOROSIS
     Dosage: UNK UKN, UNK
     Route: 042

REACTIONS (8)
  - DRUG INEFFECTIVE [None]
  - HYPERHIDROSIS [None]
  - CEREBROVASCULAR ACCIDENT [None]
  - TREMOR [None]
  - PALPITATIONS [None]
  - MUSCULOSKELETAL STIFFNESS [None]
  - INSOMNIA [None]
  - HYPOKINESIA [None]
